FAERS Safety Report 8502821-2 (Version None)
Quarter: 2012Q3

REPORT INFORMATION
  Report Type: 
  Country: None (occurrence: None)
  Receive Date: 20120711
  Receipt Date: 20120710
  Transmission Date: 20120928
  Serious: Yes (Other)
  Sender: FDA-Public Use
  Company Number: CA-PFIZER INC-HQWYE020213JUL04

PATIENT
  Age: 35 Year
  Sex: Male

DRUGS (3)
  1. ZYPREXA [Concomitant]
     Indication: BIPOLAR DISORDER
     Dosage: 2.5MG PER DAY
     Route: 065
  2. EFFEXOR XR [Suspect]
     Dosage: 225 MG, 1X/DAY
     Route: 048
     Dates: start: 20020301, end: 20040707
  3. TOPAMAX [Concomitant]
     Dosage: UNK
     Route: 065

REACTIONS (3)
  - RIB FRACTURE [None]
  - LIVER FUNCTION TEST ABNORMAL [None]
  - OSTEOPOROSIS [None]
